FAERS Safety Report 5639886-1 (Version None)
Quarter: 2008Q1

REPORT INFORMATION
  Report Type: 
  Country: None (occurrence: None)
  Receive Date: 20080225
  Receipt Date: 20080212
  Transmission Date: 20080703
  Serious: Yes (Hospitalization)
  Sender: FDA-Public Use
  Company Number: B0508981A

PATIENT
  Age: 80 Year
  Sex: Female

DRUGS (6)
  1. PAXIL [Suspect]
     Indication: DRUG USE FOR UNKNOWN INDICATION
     Dosage: 20 MG, PER DAY, ORAL
     Route: 048
     Dates: start: 20060101
  2. FLUINDIONE TABLET (FLUINDIONE) [Suspect]
     Indication: DEEP VEIN THROMBOSIS
     Dosage: 10 MG, PER DAY; ORAL
     Route: 048
     Dates: start: 20070729, end: 20071120
  3. CEFTRIAXONE SODIUM [Suspect]
     Dosage: 1 GRAM(S), PER DAY,
     Dates: start: 20071113, end: 20071120
  4. ACETAMINOPHEN [Suspect]
     Dates: start: 20071113, end: 20071115
  5. ALPRAZOLAM [Concomitant]
  6. TRIMEPRAZINE TARTRATE [Concomitant]

REACTIONS (7)
  - DEEP VEIN THROMBOSIS [None]
  - DISEASE RECURRENCE [None]
  - DRUG INTERACTION [None]
  - HAEMATOMA [None]
  - HAEMOGLOBIN DECREASED [None]
  - INTERNATIONAL NORMALISED RATIO INCREASED [None]
  - SEPSIS [None]
